FAERS Safety Report 13571682 (Version 2)
Quarter: 2017Q3

REPORT INFORMATION
  Report Type: Report from Study
  Country: GB (occurrence: GB)
  Receive Date: 20170523
  Receipt Date: 20170821
  Transmission Date: 20171127
  Serious: Yes (Other)
  Sender: FDA-Public Use
  Company Number: GB-LEO PHARMA-290059

PATIENT
  Age: 16 Year
  Sex: Female
  Weight: 63 kg

DRUGS (10)
  1. PROTOPIC [Suspect]
     Active Substance: TACROLIMUS
     Indication: DERMATITIS ATOPIC
     Dosage: 0.03 %, UNKNOWN FREQ.
     Route: 061
     Dates: start: 20061215, end: 201705
  2. BETAMETHASONE. [Concomitant]
     Active Substance: BETAMETHASONE
     Indication: DERMATITIS ATOPIC
     Dosage: UNK UNK, UNKNOWN FREQ.
     Route: 065
  3. OILATUM PLUS [Concomitant]
     Indication: DERMATITIS ATOPIC
     Dosage: AS NEEDED. TREATMENT IS ONGOING.
     Route: 061
     Dates: start: 20060313
  4. DERMOL 500 [Concomitant]
     Indication: DERMATITIS ATOPIC
     Dosage: AS NEEDED. TREATMENT IS ONGOING.
     Route: 061
     Dates: start: 20060120
  5. DAKTACORT [Concomitant]
     Active Substance: HYDROCORTISONE\MICONAZOLE NITRATE
     Indication: DERMATITIS ATOPIC
     Dosage: AS NEEDED. TREATMENT IS ONGOING.
     Route: 061
     Dates: start: 20120823
  6. CICLOSPORIN [Concomitant]
     Active Substance: CYCLOSPORINE
     Indication: DERMATITIS ATOPIC
     Dosage: TREATMENT IS ONGOING.
     Route: 048
     Dates: start: 20140625
  7. PROTOPIC [Suspect]
     Active Substance: TACROLIMUS
     Dosage: 0.03 %, ONCE A DAY, TWICE WEEKLY AS MAINTENANCE TREATMENT
     Route: 061
     Dates: start: 20130930
  8. MILDISON [Concomitant]
     Active Substance: HYDROCORTISONE
     Indication: DERMATITIS ATOPIC
     Dosage: 10 MG (2 TABLETS) , ONCE DAILY (AT NIGHT)
     Route: 065
  9. BENOVATE [Concomitant]
     Indication: DERMATITIS ATOPIC
     Dosage: AS NEEDED. TREATMENT IS ONGOING.
     Route: 061
     Dates: start: 20060313
  10. AVEENO [Concomitant]
     Active Substance: DIMETHICONE\HOMOSALATE\OCTINOXATE\OCTISALATE\TITANIUM DIOXIDE
     Indication: DERMATITIS ATOPIC
     Dosage: AS NEEDED. TREATMENT IS ONGOING.
     Route: 061
     Dates: start: 20141022

REACTIONS (3)
  - Keratoconus [Not Recovered/Not Resolved]
  - Incorrect drug administration duration [Unknown]
  - Corneal disorder [Unknown]

NARRATIVE: CASE EVENT DATE: 20061215
